FAERS Safety Report 4907937-5 (Version None)
Quarter: 2006Q1

REPORT INFORMATION
  Report Type: 
  Country: None (occurrence: None)
  Receive Date: 20060207
  Receipt Date: 20060131
  Transmission Date: 20060701
  Serious: Yes (Hospitalization)
  Sender: FDA-Public Use
  Company Number: 2005BI020811

PATIENT
  Age: 53 Year
  Sex: Female

DRUGS (1)
  1. AVONEX LIQUID [Suspect]
     Indication: MULTIPLE SCLEROSIS
     Dosage: 30 UG QW IM
     Route: 030

REACTIONS (3)
  - EXOSTOSIS [None]
  - PERIARTHRITIS [None]
  - ROTATOR CUFF SYNDROME [None]
